FAERS Safety Report 5076118-X (Version None)
Quarter: 2006Q3

REPORT INFORMATION
  Report Type: 
  Country: None (occurrence: None)
  Receive Date: 20060725
  Receipt Date: 20060426
  Transmission Date: 20061208
  Serious: No
  Sender: FDA-Public Use
  Company Number: 200610458BWH

PATIENT
  Age: 65 Year
  Sex: Male

DRUGS (6)
  1. NEXAVAR [Suspect]
     Indication: RENAL CELL CARCINOMA STAGE UNSPECIFIED
     Dosage: 400 MG, BID, ORAL
     Route: 048
     Dates: start: 20060113, end: 20060123
  2. PREDNISONE TAB [Concomitant]
  3. FOSAMAX [Concomitant]
  4. LIPITOR [Concomitant]
  5. ASPIRIN [Concomitant]
  6. ASCORBIC ACID [Concomitant]

REACTIONS (3)
  - INSOMNIA [None]
  - PRURITUS GENERALISED [None]
  - RASH GENERALISED [None]
